FAERS Safety Report 5528206-9 (Version None)
Quarter: 2007Q4

REPORT INFORMATION
  Report Type: 
  Country: None (occurrence: None)
  Receive Date: 20071128
  Receipt Date: 20071116
  Transmission Date: 20080405
  Serious: Yes (Hospitalization, Other)
  Sender: FDA-Public Use
  Company Number: US-PFIZER INC-2007023695

PATIENT
  Sex: Female

DRUGS (15)
  1. NEURONTIN [Suspect]
     Indication: AGITATION
     Dates: start: 20031101, end: 20041201
  2. ARICEPT [Suspect]
     Dates: start: 20031101, end: 20041201
  3. GLUCOTROL [Concomitant]
  4. METFORMIN HCL [Concomitant]
  5. LISINOPRIL [Concomitant]
  6. INSULIN [Concomitant]
  7. LANTUS [Concomitant]
  8. NPH INSULIN [Concomitant]
  9. ZYPREXA [Concomitant]
  10. MIRTAZAPINE [Concomitant]
  11. DIGOXIN [Concomitant]
  12. ACETYLSALICYLIC ACID SRT [Concomitant]
  13. OPHTHALMOLOGICALS [Concomitant]
  14. SEROQUEL [Concomitant]
  15. PEPCID [Concomitant]

REACTIONS (37)
  - ABNORMAL BEHAVIOUR [None]
  - AGITATION [None]
  - ANAEMIA [None]
  - AORTIC STENOSIS [None]
  - AORTIC VALVE INCOMPETENCE [None]
  - ATRIAL FIBRILLATION [None]
  - BACK PAIN [None]
  - BLINDNESS [None]
  - BLOOD PRESSURE ABNORMAL [None]
  - CANDIDIASIS [None]
  - CARDIAC FAILURE CONGESTIVE [None]
  - CONCUSSION [None]
  - CONFUSIONAL STATE [None]
  - CONTUSION [None]
  - DECUBITUS ULCER [None]
  - DEHYDRATION [None]
  - DEMENTIA [None]
  - DYSKINESIA OESOPHAGEAL [None]
  - EYE HAEMORRHAGE [None]
  - FALL [None]
  - FRACTURE [None]
  - GENERAL PHYSICAL HEALTH DETERIORATION [None]
  - HAEMATOMA [None]
  - HALLUCINATION [None]
  - HIP FRACTURE [None]
  - MENTAL STATUS CHANGES [None]
  - MITRAL VALVE INCOMPETENCE [None]
  - PLATELET COUNT INCREASED [None]
  - PNEUMONIA [None]
  - PNEUMONIA ASPIRATION [None]
  - REPETITIVE SPEECH [None]
  - RESPIRATORY FAILURE [None]
  - SEPSIS [None]
  - SPONDYLOLISTHESIS [None]
  - TRICUSPID VALVE INCOMPETENCE [None]
  - UPPER LIMB FRACTURE [None]
  - URINARY TRACT INFECTION [None]
